FAERS Safety Report 8134623-3 (Version None)
Quarter: 2012Q1

REPORT INFORMATION
  Report Type: 
  Country: None (occurrence: None)
  Receive Date: 20120214
  Receipt Date: 20120203
  Transmission Date: 20120608
  Serious: Yes (Other)
  Sender: FDA-Public Use
  Company Number: JP-BRISTOL-MYERS SQUIBB COMPANY-16317208

PATIENT
  Age: 34 Year
  Sex: Male
  Weight: 88 kg

DRUGS (10)
  1. ORENCIA [Suspect]
     Indication: RHEUMATOID ARTHRITIS
     Route: 041
     Dates: start: 20101203
  2. SHAKUYAKU-KANZO-TO [Concomitant]
     Indication: RHEUMATOID ARTHRITIS
  3. LANSOPRAZOLE [Concomitant]
     Indication: PROPHYLAXIS
     Dosage: TAKEPRON OD
  4. METHOTREXATE [Suspect]
     Indication: RHEUMATOID ARTHRITIS
     Dosage: 7.5MG:UNK-13APR11 10MG/W 20APR-19MAY11 12.5MG/W 28MAY-11JUL11 7.5MG/W 23JUL11-ONG
  5. VOLTAREN [Concomitant]
     Indication: RHEUMATOID ARTHRITIS
  6. DEXAMETHASONE [Concomitant]
     Indication: RHEUMATOID ARTHRITIS
     Route: 042
     Dates: start: 20100924
  7. CELECOXIB [Concomitant]
     Indication: RHEUMATOID ARTHRITIS
  8. RIMATIL [Suspect]
     Indication: RHEUMATOID ARTHRITIS
  9. FOLIC ACID [Concomitant]
     Indication: PROPHYLAXIS
  10. PREDNISOLONE [Concomitant]
     Indication: RHEUMATOID ARTHRITIS
     Dosage: 2MG/DAY 3DEC-17DEC10
     Route: 048
     Dates: start: 20100820, end: 20101202

REACTIONS (1)
  - LIVER DISORDER [None]
